FAERS Safety Report 23838497 (Version 1)
Quarter: 2024Q2

REPORT INFORMATION
  Report Type: Report from Study
  Country: US (occurrence: US)
  Receive Date: 20240509
  Receipt Date: 20240509
  Transmission Date: 20240716
  Serious: Yes (Hospitalization)
  Sender: FDA-Public Use
  Company Number: US-TAKEDA-2024TUS045575

PATIENT
  Sex: Male

DRUGS (1)
  1. ALOGLIPTIN BENZOATE\PIOGLITAZONE HYDROCHLORIDE [Suspect]
     Active Substance: ALOGLIPTIN BENZOATE\PIOGLITAZONE HYDROCHLORIDE
     Indication: Product used for unknown indication
     Dosage: UNK
     Route: 065

REACTIONS (3)
  - Cholecystectomy [Unknown]
  - Product use issue [Unknown]
  - No adverse event [Unknown]
